FAERS Safety Report 7430893-5 (Version None)
Quarter: 2011Q2

REPORT INFORMATION
  Report Type: 
  Country: None (occurrence: None)
  Receive Date: 20110421
  Receipt Date: 20110419
  Transmission Date: 20111010
  Serious: Yes (Life-Threatening, Hospitalization, Other)
  Sender: FDA-Public Use
  Company Number: US-B.I. PHARMACEUTICALS,INC./RIDGEFIELD-2011-BP-01514BP

PATIENT
  Age: 56 Year
  Sex: Male
  Weight: 71.67 kg

DRUGS (10)
  1. PLAVIX [Concomitant]
     Dosage: 75 MG
     Dates: start: 20080101
  2. HYDRALAZINE [Concomitant]
     Dosage: 20 MG
  3. ASPIRIN [Concomitant]
     Dosage: 325 MG
     Dates: start: 20080101
  4. PROTONIX [Concomitant]
  5. PREDNISONE [Concomitant]
     Dosage: 325 MG
  6. ZANTAC [Concomitant]
     Dosage: 300 MG
  7. SYNTHROID [Concomitant]
     Dosage: 125 MCG
  8. PRADAXA [Suspect]
     Indication: ATRIAL FIBRILLATION
     Dosage: 300 MG
     Route: 048
     Dates: start: 20101222, end: 20110116
  9. LIPITOR [Concomitant]
     Dosage: 20 MG
     Dates: start: 20080101
  10. PRADAXA [Suspect]
     Indication: ATRIAL FLUTTER

REACTIONS (17)
  - CONDITION AGGRAVATED [None]
  - ANAEMIA [None]
  - GASTRITIS EROSIVE [None]
  - DYSPNOEA EXERTIONAL [None]
  - MELAENA [None]
  - THROMBOSIS [None]
  - HYPOTENSION [None]
  - PRESYNCOPE [None]
  - CHEST PAIN [None]
  - GASTROINTESTINAL HAEMORRHAGE [None]
  - DIZZINESS [None]
  - ACUTE MYOCARDIAL INFARCTION [None]
  - INTERNATIONAL NORMALISED RATIO INCREASED [None]
  - FATIGUE [None]
  - PALLOR [None]
  - RENAL FAILURE ACUTE [None]
  - EPISTAXIS [None]
